FAERS Safety Report 14319547 (Version 2)
Quarter: 2017Q4

REPORT INFORMATION
  Report Type: Spontaneous
  Country: FI (occurrence: FI)
  Receive Date: 20171222
  Receipt Date: 20171222
  Transmission Date: 20180321
  Serious: Yes (Other)
  Sender: FDA-Public Use
  Company Number: FI-TEVA-2017-FI-834307

PATIENT
  Sex: Female

DRUGS (1)
  1. ZOELY [Suspect]
     Active Substance: ESTRADIOL\NOMEGESTROL ACETATE
     Indication: CONTRACEPTION
     Route: 048

REACTIONS (2)
  - Pregnancy on oral contraceptive [Unknown]
  - Unintended pregnancy [Unknown]
